FAERS Safety Report 22803398 (Version 3)
Quarter: 2023Q4

REPORT INFORMATION
  Report Type: Spontaneous
  Country: US (occurrence: US)
  Receive Date: 20230809
  Receipt Date: 20231113
  Transmission Date: 20240110
  Serious: No
  Sender: FDA-Public Use
  Company Number: US-PFIZER INC-202300266043

PATIENT
  Age: 15 Year
  Sex: Male

DRUGS (2)
  1. GENOTROPIN [Suspect]
     Active Substance: SOMATROPIN
     Indication: Hypopituitarism
     Dosage: 2.6 MG, ALTERNATE DAY (ALTERNATING EVERY OTHER DAY BETWEEN 2.6MG AND 2.8MG)
  2. GENOTROPIN [Suspect]
     Active Substance: SOMATROPIN
     Dosage: 2.8 MG, ALTERNATE DAY (ALTERNATING EVERY OTHER DAY BETWEEN 2.6MG AND 2.8MG)

REACTIONS (1)
  - Liquid product physical issue [Unknown]
